FAERS Safety Report 19940456 (Version 1)
Quarter: 2021Q4

REPORT INFORMATION
  Report Type: Spontaneous
  Country: GB (occurrence: GB)
  Receive Date: 20211012
  Receipt Date: 20211012
  Transmission Date: 20220303
  Serious: Yes (Other)
  Sender: FDA-Public Use
  Company Number: GB-MHRA-EYC 00261872

PATIENT
  Age: 72 Year
  Sex: Male
  Weight: 82.55 kg

DRUGS (2)
  1. AMLODIPINE [Suspect]
     Active Substance: AMLODIPINE BESYLATE
     Indication: Ill-defined disorder
     Dosage: 10 MILLIGRAM
     Route: 048
     Dates: start: 20210820
  2. RAMIPRIL [Suspect]
     Active Substance: RAMIPRIL
     Indication: Ill-defined disorder
     Dosage: 5 MILLIGRAM
     Route: 048
     Dates: start: 20210820

REACTIONS (1)
  - Adverse drug reaction [Unknown]

NARRATIVE: CASE EVENT DATE: 20210821
